FAERS Safety Report 10477426 (Version 1)
Quarter: 2014Q3

REPORT INFORMATION
  Report Type: Spontaneous
  Country: DE (occurrence: ES)
  Receive Date: 20140926
  Receipt Date: 20140926
  Transmission Date: 20150326
  Serious: Yes (Life-Threatening, Hospitalization, Other)
  Sender: FDA-Public Use
  Company Number: DE-JNJFOC-20140916952

PATIENT
  Sex: Female

DRUGS (3)
  1. ASTHMA MEDICATION NOS [Concomitant]
     Indication: ASTHMA
     Route: 065
  2. NICORETTE [Suspect]
     Active Substance: NICOTINE
     Indication: PRODUCT USED FOR UNKNOWN INDICATION
     Route: 048
  3. ANTI HYPERTENSIVE NOS [Concomitant]
     Indication: HYPERTENSION
     Route: 065

REACTIONS (2)
  - Asthma [Recovered/Resolved]
  - Laryngitis [Recovered/Resolved]

NARRATIVE: CASE EVENT DATE: 20140710
